FAERS Safety Report 10945457 (Version 2)
Quarter: 2015Q2

REPORT INFORMATION
  Report Type: Spontaneous
  Country: US (occurrence: US)
  Receive Date: 20150323
  Receipt Date: 20150520
  Transmission Date: 20150821
  Serious: Yes (Other)
  Sender: FDA-Public Use
  Company Number: US-BAYER-2015-051391

PATIENT
  Age: 35 Year
  Sex: Female
  Weight: 91.16 kg

DRUGS (3)
  1. HYDRALAZINE [Concomitant]
     Active Substance: HYDRALAZINE HYDROCHLORIDE
  2. LAMICTAL [Concomitant]
     Active Substance: LAMOTRIGINE
  3. MIRENA [Suspect]
     Active Substance: LEVONORGESTREL
     Indication: CONTRACEPTION
     Dosage: 20 MCG/24HR, CONT
     Route: 015
     Dates: start: 20140211, end: 20141016

REACTIONS (7)
  - General physical health deterioration [None]
  - Acne [None]
  - Pharyngitis streptococcal [None]
  - Exfoliative rash [Recovered/Resolved]
  - Headache [None]
  - Lyme disease [None]
  - Guttate psoriasis [None]

NARRATIVE: CASE EVENT DATE: 201402
